FAERS Safety Report 16956563 (Version 1)
Quarter: 2019Q4

REPORT INFORMATION
  Report Type: Spontaneous
  Country: US (occurrence: US)
  Receive Date: 20191024
  Receipt Date: 20191024
  Transmission Date: 20200122
  Serious: Yes (Other)
  Sender: FDA-Public Use
  Company Number: US-MYLANLABS-2019M1099533

PATIENT
  Sex: Female

DRUGS (12)
  1. ETHINYLESTRADIOL/NORETHISTERONE [Suspect]
     Active Substance: ETHINYL ESTRADIOL\NORETHINDRONE
     Indication: CONTRACEPTION
     Route: 064
     Dates: end: 200911
  2. AZATHIOPRINE. [Suspect]
     Active Substance: AZATHIOPRINE
     Indication: SYSTEMIC LUPUS ERYTHEMATOSUS
     Dosage: THREE TIMES A DAY
     Route: 064
     Dates: end: 200911
  3. PLAQUENIL                          /00072602/ [Suspect]
     Active Substance: HYDROXYCHLOROQUINE DIPHOSPHATE
     Indication: SYSTEMIC LUPUS ERYTHEMATOSUS
     Route: 064
     Dates: end: 200911
  4. PLAQUENIL                          /00072602/ [Suspect]
     Active Substance: HYDROXYCHLOROQUINE DIPHOSPHATE
     Indication: RHEUMATOID ARTHRITIS
  5. RAMIPRIL. [Suspect]
     Active Substance: RAMIPRIL
     Indication: MICROVASCULAR CORONARY ARTERY DISEASE
     Route: 064
     Dates: end: 200911
  6. PREDNISONE. [Suspect]
     Active Substance: PREDNISONE
     Indication: RHEUMATOID ARTHRITIS
     Dosage: RESTARTED
     Route: 064
     Dates: start: 201004
  7. EPRATUZUMAB [Suspect]
     Active Substance: EPRATUZUMAB
     Indication: PRODUCT USED FOR UNKNOWN INDICATION
     Route: 064
     Dates: end: 200911
  8. PREDNISONE. [Suspect]
     Active Substance: PREDNISONE
     Indication: SYSTEMIC LUPUS ERYTHEMATOSUS
     Dosage: UNK
     Route: 064
     Dates: end: 200911
  9. ATORVASTATIN [Suspect]
     Active Substance: ATORVASTATIN
     Indication: MICROVASCULAR CORONARY ARTERY DISEASE
     Route: 064
     Dates: end: 200911
  10. ASPIRIN                            /00002701/ [Suspect]
     Active Substance: ASPIRIN
     Indication: PRODUCT USED FOR UNKNOWN INDICATION
     Route: 064
  11. CARVEDILOL. [Suspect]
     Active Substance: CARVEDILOL
     Indication: MICROVASCULAR CORONARY ARTERY DISEASE
     Route: 064
     Dates: end: 200911
  12. AZATHIOPRINE. [Suspect]
     Active Substance: AZATHIOPRINE
     Indication: RHEUMATOID ARTHRITIS

REACTIONS (2)
  - Foetal exposure during pregnancy [Recovered/Resolved]
  - Small for dates baby [Unknown]
